FAERS Safety Report 5114526-9 (Version None)
Quarter: 2006Q3

REPORT INFORMATION
  Report Type: 
  Country: None (occurrence: None)
  Receive Date: 20060922
  Receipt Date: 20060922
  Transmission Date: 20061208
  Serious: Yes (Hospitalization)
  Sender: FDA-Public Use
  Company Number: None

PATIENT
  Sex: Male

DRUGS (15)
  1. AMOXICILLIN + CLAVULANATE POTASSIUM [Suspect]
     Indication: EMPYEMA
     Dosage: 1 TABLET  EVERY 12 HOURS  PO
     Route: 048
     Dates: start: 20060425, end: 20060517
  2. METFORMIN HCL [Concomitant]
  3. GLYBURIDE [Concomitant]
  4. VICODIN [Concomitant]
  5. SIMVASTATIN [Concomitant]
  6. POTASSIUM CHLORIDE [Concomitant]
  7. MULTI-VITAMIN [Concomitant]
  8. METOPROLOL SUCCINATE [Concomitant]
  9. LISINOPRIL [Concomitant]
  10. ISOSORBIDE MONONITRATE [Concomitant]
  11. FUROSEMIDE [Concomitant]
  12. DOCUSATE [Concomitant]
  13. DIGOXIN [Concomitant]
  14. WARFARIN SODIUM [Concomitant]
  15. NORTRIPTYLINE HCL [Concomitant]

REACTIONS (3)
  - INTERNATIONAL NORMALISED RATIO INCREASED [None]
  - PURPURA [None]
  - VASCULITIC RASH [None]
